FAERS Safety Report 13899134 (Version 3)
Quarter: 2018Q1

REPORT INFORMATION
  Report Type: Spontaneous
  Country: US (occurrence: US)
  Receive Date: 20170823
  Receipt Date: 20180109
  Transmission Date: 20180508
  Serious: Yes (Hospitalization, Other)
  Sender: FDA-Public Use
  Company Number: US-ACTELION-A-NJ2017-155826

PATIENT
  Age: 33 Year
  Sex: Male

DRUGS (1)
  1. VELETRI [Suspect]
     Active Substance: EPOPROSTENOL
     Indication: PULMONARY ARTERIAL HYPERTENSION
     Dosage: 26.5 NG/KG, PER MIN
     Route: 042
     Dates: start: 20150202

REACTIONS (7)
  - Dyspnoea [Not Recovered/Not Resolved]
  - Fluid retention [Recovering/Resolving]
  - Catheter site pain [Not Recovered/Not Resolved]
  - Unevaluable event [Unknown]
  - Oxygen consumption decreased [Unknown]
  - Pulmonary arterial hypertension [Unknown]
  - Condition aggravated [Unknown]
